FAERS Safety Report 11495522 (Version 1)
Quarter: 2015Q3

REPORT INFORMATION
  Report Type: Spontaneous
  Country: US (occurrence: None)
  Receive Date: 20150910
  Receipt Date: 20150910
  Transmission Date: 20151125
  Serious: Yes (Disabling, Other)
  Sender: FDA-Public Use
  Company Number: None

PATIENT
  Age: 87 Year
  Sex: Female
  Weight: 71.22 kg

DRUGS (2)
  1. HYDROCHLOROTHIAZIDE. [Suspect]
     Active Substance: HYDROCHLOROTHIAZIDE
     Indication: PRODUCT USED FOR UNKNOWN INDICATION
     Dosage: 1 PILL DAILY BY MOUTH
     Route: 048
     Dates: start: 20150612, end: 20150828
  2. OMEPRAZOLE. [Concomitant]
     Active Substance: OMEPRAZOLE

REACTIONS (6)
  - Blood pressure increased [None]
  - Pain in extremity [None]
  - Peripheral swelling [None]
  - Dyspnoea [None]
  - Dizziness [None]
  - Contusion [None]

NARRATIVE: CASE EVENT DATE: 20150501
